FAERS Safety Report 15564759 (Version 1)
Quarter: 2018Q4

REPORT INFORMATION
  Report Type: Spontaneous
  Country: US (occurrence: US)
  Receive Date: 20181029
  Receipt Date: 20181029
  Transmission Date: 20190205
  Serious: Yes (Other)
  Sender: FDA-Public Use
  Company Number: None

PATIENT
  Age: 71 Year
  Sex: Female
  Weight: 90 kg

DRUGS (8)
  1. AMBIEN [Concomitant]
     Active Substance: ZOLPIDEM TARTRATE
  2. ASPIRIN. [Concomitant]
     Active Substance: ASPIRIN
  3. PROVENTIL HFA [Concomitant]
     Active Substance: ALBUTEROL SULFATE
  4. HCT [Concomitant]
     Active Substance: HYDROCHLOROTHIAZIDE
  5. TERBUTALINE 5 MG [Suspect]
     Active Substance: TERBUTALINE SULFATE
     Indication: ASTHMA
     Route: 048
     Dates: start: 20181022, end: 20181029
  6. FLONASE [Concomitant]
     Active Substance: FLUTICASONE PROPIONATE
  7. LISINOPRIL. [Concomitant]
     Active Substance: LISINOPRIL
  8. IBUPROFEN. [Concomitant]
     Active Substance: IBUPROFEN

REACTIONS (6)
  - Palpitations [None]
  - Nausea [None]
  - Product substitution issue [None]
  - Headache [None]
  - Cardiac flutter [None]
  - Heart rate increased [None]

NARRATIVE: CASE EVENT DATE: 20181022
